FAERS Safety Report 13124349 (Version 1)
Quarter: 2017Q1

REPORT INFORMATION
  Report Type: Report from Study
  Country: JP (occurrence: JP)
  Receive Date: 20170118
  Receipt Date: 20170118
  Transmission Date: 20170428
  Serious: Yes (Other)
  Sender: FDA-Public Use
  Company Number: JP-ACCORD-047386

PATIENT
  Age: 38 Year
  Sex: Male

DRUGS (3)
  1. OXALIPLATIN. [Suspect]
     Active Substance: OXALIPLATIN
     Indication: METASTASES TO BONE
     Dosage: DOSE REDUCED BECAUSE OF A DECREASE IN BONE MARROW SUPPRESSION
  2. FOLINIC ACID [Suspect]
     Active Substance: LEUCOVORIN
     Indication: METASTASES TO BONE
     Dosage: DOSE REDUCED BECAUSE OF A DECREASE IN BONE MARROW SUPPRESSION
  3. FLUOROURACIL. [Suspect]
     Active Substance: FLUOROURACIL
     Indication: METASTASES TO BONE
     Dosage: DOSE OF BOLUS INJECTION OF 5-FU WAS OMITTED BECAUSE OF A DECREASE IN BONE MARROW SUPPRESSION.

REACTIONS (2)
  - Treatment failure [Unknown]
  - Hyponatraemia [Unknown]
